FAERS Safety Report 5606776-X (Version None)
Quarter: 2008Q1

REPORT INFORMATION
  Report Type: 
  Country: None (occurrence: None)
  Receive Date: 20080111
  Receipt Date: 20071005
  Transmission Date: 20080703
  Serious: Yes (Other)
  Sender: FDA-Public Use
  Company Number: HQWYE423926JUL04

PATIENT
  Age: 57 Year
  Sex: Female

DRUGS (7)
  1. PREMPRO [Suspect]
  2. COMBIPATCH [Suspect]
  3. ESTRADIOL [Suspect]
  4. ESTROPIPATE [Suspect]
  5. NORETHITERONE (NORETHISTERONE) [Suspect]
  6. PREMARIN [Suspect]
  7. PROMETRIUM [Suspect]

REACTIONS (1)
  - BREAST CANCER [None]
